FAERS Safety Report 25617658 (Version 3)
Quarter: 2025Q3

REPORT INFORMATION
  Report Type: Report from Study
  Country: US (occurrence: US)
  Receive Date: 20250729
  Receipt Date: 20250828
  Transmission Date: 20251020
  Serious: Yes (Death, Hospitalization, Other)
  Sender: STEMLINE THERAPEUTICS
  Company Number: US-STEMLINE THERAPEUTICS, INC-2025-STML-US002630

PATIENT

DRUGS (3)
  1. ORSERDU [Suspect]
     Active Substance: ELACESTRANT
     Indication: Product used for unknown indication
     Dosage: UNK, (MG) DAILY
     Route: 048
     Dates: start: 20250508, end: 20250722
  2. ORSERDU [Suspect]
     Active Substance: ELACESTRANT
     Dosage: UNK, DAILY (MG)
     Route: 065
     Dates: start: 20250530
  3. ORSERDU [Suspect]
     Active Substance: ELACESTRANT
     Dosage: UNK, DAILY (MG)
     Route: 065
     Dates: start: 20250616, end: 20250820

REACTIONS (6)
  - Death [Fatal]
  - Sensation of foreign body [Unknown]
  - Dysphagia [Unknown]
  - Dyspnoea [Unknown]
  - Product size issue [Unknown]
  - Product use complaint [Unknown]
